FAERS Safety Report 5083827-5 (Version None)
Quarter: 2006Q3

REPORT INFORMATION
  Report Type: 
  Country: None (occurrence: None)
  Receive Date: 20060818
  Receipt Date: 20060714
  Transmission Date: 20061208
  Serious: Yes (Hospitalization, Other)
  Sender: FDA-Public Use
  Company Number: US-AMGEN-STX186409

PATIENT
  Sex: Male
  Weight: 82.2 kg

DRUGS (21)
  1. ENBREL [Suspect]
     Indication: RHEUMATOID ARTHRITIS
     Dates: start: 20050901
  2. OXYGEN [Concomitant]
  3. AMLODIPINE [Concomitant]
  4. ATENOLOL [Concomitant]
  5. ATORVASTATIN CALCIUM [Concomitant]
  6. BRIMONIDINE TARTRATE [Concomitant]
     Route: 047
  7. CALCITONIN-SALMON [Concomitant]
     Route: 045
  8. FLUNISOLIDE [Concomitant]
     Route: 055
  9. FUROSEMIDE [Concomitant]
  10. LISINOPRIL [Concomitant]
  11. NITROGLYCERIN [Concomitant]
     Route: 060
  12. PREDNISONE [Concomitant]
  13. SULFASALAZINE [Concomitant]
  14. POTASSIUM [Concomitant]
  15. RANITIDINE [Concomitant]
  16. THEOPHYLLINE [Concomitant]
  17. TIMOLOL MALEATE [Concomitant]
     Route: 047
  18. TRAZODONE HCL [Concomitant]
  19. WARFARIN SODIUM [Concomitant]
  20. WARFARIN SODIUM [Concomitant]
  21. AMLODIPINE [Concomitant]

REACTIONS (15)
  - ABDOMINAL PAIN [None]
  - ACUTE MYOCARDIAL INFARCTION [None]
  - ANAEMIA [None]
  - ASTHENIA [None]
  - CONSTIPATION [None]
  - DEPRESSED LEVEL OF CONSCIOUSNESS [None]
  - DIARRHOEA [None]
  - DIFFUSE LARGE B-CELL LYMPHOMA [None]
  - DYSPNOEA [None]
  - LEUKOCYTOSIS [None]
  - NAUSEA [None]
  - ORAL INTAKE REDUCED [None]
  - PROTEINURIA [None]
  - RENAL FAILURE ACUTE [None]
  - VOMITING [None]
